FAERS Safety Report 6718696-8 (Version None)
Quarter: 2010Q2

REPORT INFORMATION
  Report Type: 
  Country: None (occurrence: None)
  Receive Date: 20100507
  Receipt Date: 20100424
  Transmission Date: 20101027
  Serious: Yes (Hospitalization)
  Sender: FDA-Public Use
  Company Number: 2010AP000872

PATIENT
  Age: 67 Year
  Sex: Female

DRUGS (1)
  1. RAMIPRIL [Suspect]
     Indication: HYPERTENSION
     Dosage: 5 MG; QD

REACTIONS (4)
  - CHILLS [None]
  - CORNEAL ABSCESS [None]
  - PUSTULAR PSORIASIS [None]
  - PYREXIA [None]
